FAERS Safety Report 16188563 (Version 1)
Quarter: 2019Q2

REPORT INFORMATION
  Report Type: Spontaneous
  Country: JP (occurrence: JP)
  Receive Date: 20190412
  Receipt Date: 20190412
  Transmission Date: 20190711
  Serious: Yes (Other)
  Sender: FDA-Public Use
  Company Number: JP-GLAXOSMITHKLINE-JP2019JPN063226

PATIENT
  Age: 6 Decade
  Weight: 52 kg

DRUGS (7)
  1. CALCITRIOL. [Concomitant]
     Active Substance: CALCITRIOL
     Dosage: 0.5 ?G, 1D
     Dates: start: 2016
  2. HEPSERA [Suspect]
     Active Substance: ADEFOVIR DIPIVOXIL
     Indication: VIRAL HEPATITIS CARRIER
     Dosage: 10 MG, 1D
     Route: 048
     Dates: start: 200506, end: 2016
  3. TERIPARATIDE ACETATE [Concomitant]
     Active Substance: TERIPARATIDE ACETATE
     Indication: OSTEOPOROSIS
     Dosage: 20 NG, 1D
     Dates: start: 201503
  4. ENTECAVIR. [Concomitant]
     Active Substance: ENTECAVIR
     Indication: VIRAL HEPATITIS CARRIER
     Dosage: 1.0 MG, QOD
  5. ALENDRONATE SODIUM HYDRATE [Concomitant]
     Active Substance: ALENDRONATE SODIUM
     Indication: OSTEOPOROSIS
     Dosage: 35 MG, WE
     Route: 048
     Dates: start: 201401, end: 201503
  6. CALCITRIOL. [Concomitant]
     Active Substance: CALCITRIOL
     Indication: HYPOPHOSPHATAEMIC OSTEOMALACIA
     Dosage: 1.0 ?G, 1D
     Dates: start: 201509, end: 2016
  7. ZEFIX [Suspect]
     Active Substance: LAMIVUDINE
     Indication: VIRAL HEPATITIS CARRIER
     Dosage: 100 MG, 1D
     Route: 048
     Dates: start: 2002, end: 2016

REACTIONS (13)
  - Acidosis [Recovering/Resolving]
  - Fanconi syndrome [Unknown]
  - Hyperphosphatasaemia [Recovering/Resolving]
  - Hypophosphataemia [Recovering/Resolving]
  - Muscular weakness [Unknown]
  - Hepatocellular carcinoma [Recovered/Resolved]
  - Hypophosphataemic osteomalacia [Unknown]
  - Hepatitis [Unknown]
  - Arthralgia [Recovering/Resolving]
  - Fracture [Unknown]
  - Hypouricaemia [Unknown]
  - Gait disturbance [Unknown]
  - Chronic kidney disease [Unknown]

NARRATIVE: CASE EVENT DATE: 200506
